FAERS Safety Report 8852580 (Version 2)
Quarter: 2012Q4

REPORT INFORMATION
  Report Type: 
  Country: DE (occurrence: DE)
  Receive Date: 20121022
  Receipt Date: 20121116
  Transmission Date: 20130627
  Serious: Yes (Other)
  Sender: FDA-Public Use
  Company Number: DE-JUTA-2012-18208

PATIENT
  Age: 80 Year
  Sex: Male

DRUGS (2)
  1. AZATHIOPRINE (UNKNOWN) [Suspect]
     Indication: MYASTHENIA GRAVIS
     Dosage: 40 mg, daily
     Route: 065
  2. PREDNISOLONE (UNKNOWN) [Suspect]
     Indication: MYASTHENIA GRAVIS
     Dosage: 5 mg, daily
     Route: 065

REACTIONS (2)
  - Kaposi^s sarcoma [Unknown]
  - Renal failure [Unknown]
